FAERS Safety Report 15745732 (Version 1)
Quarter: 2018Q4

REPORT INFORMATION
  Report Type: Spontaneous
  Country: NO (occurrence: NO)
  Receive Date: 20181220
  Receipt Date: 20181220
  Transmission Date: 20190205
  Serious: Yes (Other)
  Sender: FDA-Public Use
  Company Number: PHHY2018NO188645

PATIENT
  Sex: Female

DRUGS (1)
  1. COSENTYX [Suspect]
     Active Substance: SECUKINUMAB
     Indication: ANKYLOSING SPONDYLITIS
     Dosage: 300 MG, UNK
     Route: 065
     Dates: start: 201806, end: 201809

REACTIONS (3)
  - Dyspnoea [Recovered/Resolved]
  - Fungal rhinitis [Recovered/Resolved]
  - Oropharyngitis fungal [Recovered/Resolved]

NARRATIVE: CASE EVENT DATE: 201809
